FAERS Safety Report 4436328-9 (Version None)
Quarter: 2004Q3

REPORT INFORMATION
  Report Type: 
  Country: None (occurrence: None)
  Receive Date: 20040728
  Receipt Date: 20030604
  Transmission Date: 20050211
  Serious: Yes (Hospitalization)
  Sender: FDA-Public Use
  Company Number: 201111

PATIENT
  Age: 62 Year
  Sex: Male
  Weight: 102 kg

DRUGS (10)
  1. RITUXAN [Suspect]
     Indication: CHRONIC LYMPHOCYTIC LEUKAEMIA
     Dosage: 825 MG, 1/WEEK, INTRAVENOUS
     Route: 042
     Dates: start: 20030507, end: 20030529
  2. FLUDARABINE (FLUDARABINE PHOSPHATE) [Concomitant]
  3. IVIG (GLOBULIN, IMMUNE) [Concomitant]
  4. TAGAMET [Concomitant]
  5. DEMEROL [Concomitant]
  6. TYLENOL [Concomitant]
  7. DECADRON [Concomitant]
  8. ZOFRAN [Concomitant]
  9. ALLEGRA [Concomitant]
  10. ALLOPURINOL [Concomitant]

REACTIONS (3)
  - CHILLS [None]
  - PNEUMONIA [None]
  - PYREXIA [None]
